FAERS Safety Report 8501956-8 (Version None)
Quarter: 2012Q3

REPORT INFORMATION
  Report Type: 
  Country: None (occurrence: None)
  Receive Date: 20120711
  Receipt Date: 20120618
  Transmission Date: 20120928
  Serious: No
  Sender: FDA-Public Use
  Company Number: CA-JNJFOC-20120610232

PATIENT
  Sex: Female
  Weight: 76.9 kg

DRUGS (10)
  1. REMICADE [Suspect]
     Indication: CROHN'S DISEASE
     Route: 042
  2. ZOPLICONE [Concomitant]
     Route: 065
  3. PLAVIX [Concomitant]
     Route: 065
  4. CARVEDILOL [Concomitant]
     Route: 065
  5. FLUOXETINE [Concomitant]
     Route: 065
  6. FUROSEMIDE [Concomitant]
     Route: 065
  7. LANTUS [Concomitant]
     Route: 065
  8. NATURAL THYROID PRODUCT [Concomitant]
     Route: 065
  9. CRESTOR [Concomitant]
     Route: 065
  10. INSULIN GLULISINE [Concomitant]
     Route: 065

REACTIONS (1)
  - EYE INFECTION [None]
